FAERS Safety Report 7927204-5 (Version None)
Quarter: 2011Q4

REPORT INFORMATION
  Report Type: 
  Country: None (occurrence: None)
  Receive Date: 20111116
  Receipt Date: 20111107
  Transmission Date: 20120403
  Serious: Yes (Other)
  Sender: FDA-Public Use
  Company Number: 2010JP005142

PATIENT
  Age: 71 Year
  Sex: Male
  Weight: 63 kg

DRUGS (7)
  1. LOSARTAN POTASSIUM AND HYDROCHLOROTHIAZIDE [Concomitant]
  2. RISEDRONATE SODIUM [Concomitant]
  3. TACROLIMUS [Suspect]
     Indication: LUPUS NEPHRITIS
     Dosage: 3; 1 MG, D, ORAL
     Route: 048
     Dates: start: 20090530, end: 20100507
  4. TACROLIMUS [Suspect]
     Indication: LUPUS NEPHRITIS
     Dosage: 3; 1 MG, D, ORAL
     Route: 048
     Dates: start: 20100508
  5. PERSANTIN [Concomitant]
  6. ADALAT [Concomitant]
  7. PREDNISOLONE [Concomitant]

REACTIONS (1)
  - SJOGREN'S SYNDROME [None]
